FAERS Safety Report 17440216 (Version 2)
Quarter: 2020Q1

REPORT INFORMATION
  Report Type: Spontaneous
  Country: US (occurrence: US)
  Receive Date: 20200220
  Receipt Date: 20200317
  Transmission Date: 20200409
  Serious: No
  Sender: FDA-Public Use
  Company Number: US-PFIZER INC-2020076643

PATIENT
  Age: 80 Year
  Sex: Female
  Weight: 49.44 kg

DRUGS (1)
  1. XELJANZ XR [Suspect]
     Active Substance: TOFACITINIB CITRATE
     Indication: RHEUMATOID ARTHRITIS
     Dosage: 11 MG, UNK

REACTIONS (5)
  - Circumstance or information capable of leading to medication error [Unknown]
  - Alopecia [Unknown]
  - Hypoacusis [Unknown]
  - Body height decreased [Unknown]
  - Malaise [Unknown]
